FAERS Safety Report 9012899 (Version 1)
Quarter: 2013Q1

REPORT INFORMATION
  Report Type: Spontaneous
  Country: US (occurrence: US)
  Receive Date: 20130114
  Receipt Date: 20130114
  Transmission Date: 20140127
  Serious: Yes (Other)
  Sender: FDA-Public Use
  Company Number: US-009507513-1301USA004173

PATIENT
  Age: 55 Year
  Sex: Male

DRUGS (4)
  1. SINGULAIR [Suspect]
     Route: 065
  2. PREDNISONE [Suspect]
     Dosage: 0.5 MG, KG, QD
     Route: 048
  3. PREDNISONE [Suspect]
     Dosage: 20 MG, QD
     Route: 048
  4. [THERAPY UNSPECIFIED] [Suspect]
     Route: 065

REACTIONS (12)
  - Vasculitis [Unknown]
  - Urticaria [Unknown]
  - Sinusitis [Unknown]
  - Paraesthesia [Unknown]
  - Myalgia [Unknown]
  - Muscle enzyme increased [Unknown]
  - Inflammation [Unknown]
  - Fatigue [Unknown]
  - Eosinophilia [Unknown]
  - Dermatosis [Unknown]
  - Angioedema [Unknown]
  - Allergic granulomatous angiitis [Unknown]
